FAERS Safety Report 16326117 (Version 2)
Quarter: 2019Q3

REPORT INFORMATION
  Report Type: Spontaneous
  Country: US (occurrence: US)
  Receive Date: 20190517
  Receipt Date: 20190725
  Transmission Date: 20191004
  Serious: Yes (Other)
  Sender: FDA-Public Use
  Company Number: US-BAYER-2019-096763

PATIENT

DRUGS (5)
  1. MAGNEVIST [Suspect]
     Active Substance: GADOPENTETATE DIMEGLUMINE
     Dosage: UNK UNK, ONCE
     Dates: start: 20101215, end: 20101215
  2. GADOLINIUM IN UNSPECIFIED DRUG [Suspect]
     Active Substance: GADOLINIUM
     Indication: NUCLEAR MAGNETIC RESONANCE IMAGING
  3. MAGNEVIST [Suspect]
     Active Substance: GADOPENTETATE DIMEGLUMINE
     Dosage: UNK UNK, ONCE
     Dates: start: 20100917, end: 20100917
  4. MAGNEVIST [Suspect]
     Active Substance: GADOPENTETATE DIMEGLUMINE
     Dosage: UNK UNK, ONCE
     Dates: start: 20140806, end: 20140806
  5. MAGNEVIST [Suspect]
     Active Substance: GADOPENTETATE DIMEGLUMINE
     Dosage: UNK UNK, ONCE
     Dates: start: 20150501, end: 20150501

REACTIONS (16)
  - Contrast media toxicity [None]
  - Contrast media deposition [None]
  - Anxiety [None]
  - Gadolinium deposition disease [None]
  - Nervous system disorder [None]
  - Myalgia [None]
  - Feeling abnormal [None]
  - Arthralgia [None]
  - Rash [None]
  - Fatigue [None]
  - Emotional distress [None]
  - Pain [None]
  - Bone pain [None]
  - Paraesthesia [None]
  - Cognitive disorder [None]
  - Skin disorder [None]
